FAERS Safety Report 11399633 (Version 2)
Quarter: 2015Q3

REPORT INFORMATION
  Report Type: Spontaneous
  Country: BR (occurrence: BR)
  Receive Date: 20150820
  Receipt Date: 20150831
  Transmission Date: 20151125
  Serious: Yes (Hospitalization)
  Sender: FDA-Public Use
  Company Number: BR-PFIZER INC-2015196563

PATIENT
  Age: 54 Year
  Sex: Female

DRUGS (4)
  1. GARDENAL [Concomitant]
     Active Substance: PHENOBARBITAL
     Dosage: 100 MG, UNK
     Dates: start: 2005
  2. ROSUVASTATIN CALCIUM. [Concomitant]
     Active Substance: ROSUVASTATIN CALCIUM
     Dosage: 10 MG, UNK
     Dates: start: 2013
  3. FRONTAL [Suspect]
     Active Substance: ALPRAZOLAM
     Indication: INSOMNIA
     Dosage: 1 MG, 1X/DAY
     Dates: start: 2010
  4. VENLIFT OD [Concomitant]
     Active Substance: VENLAFAXINE HYDROCHLORIDE
     Dosage: 75 MG, UNK
     Dates: start: 2010

REACTIONS (3)
  - Product quality issue [Not Recovered/Not Resolved]
  - Haemorrhoids [Unknown]
  - Drug ineffective [Not Recovered/Not Resolved]

NARRATIVE: CASE EVENT DATE: 2015
